FAERS Safety Report 5533038-1 (Version None)
Quarter: 2007Q4

REPORT INFORMATION
  Report Type: 
  Country: None (occurrence: None)
  Receive Date: 20071204
  Receipt Date: 20071121
  Transmission Date: 20080405
  Serious: Yes (Hospitalization)
  Sender: FDA-Public Use
  Company Number: JP-ELI_LILLY_AND_COMPANY-JP200710002469

PATIENT
  Sex: Female
  Weight: 48 kg

DRUGS (12)
  1. RALOXIFENE HYDROCHLORIDE [Suspect]
     Indication: OSTEOPOROSIS POSTMENOPAUSAL
     Dosage: 60 MG, DAILY (1/D)
     Route: 048
     Dates: start: 20041207
  2. RALOXIFENE HYDROCHLORIDE [Suspect]
     Dosage: 60 MG, DAILY (1/D)
     Route: 048
     Dates: start: 20060124
  3. MYSLEE [Concomitant]
     Indication: INSOMNIA
     Dosage: 5 MG, DAILY (1/D)
     Route: 048
     Dates: start: 20040914, end: 20051031
  4. ALDACTONE [Concomitant]
     Indication: HYPERTENSION
     Dosage: 25 MG, DAILY (1/D)
     Route: 048
     Dates: start: 20041102, end: 20051031
  5. TAKEPRON [Concomitant]
     Indication: REFLUX OESOPHAGITIS
     Dosage: 30 MG, DAILY (1/D)
     Route: 048
     Dates: start: 20041207, end: 20051031
  6. TOLBUTAMIDE [Concomitant]
     Indication: DIABETES MELLITUS
     Dosage: 500 MG, DAILY (1/D)
     Route: 048
     Dates: end: 20051031
  7. GANATON [Concomitant]
     Indication: GASTRITIS ATROPHIC
     Dosage: 150 MG, DAILY (1/D)
     Route: 048
     Dates: end: 20051031
  8. ONEALFA [Concomitant]
     Indication: OSTEOPOROSIS POSTMENOPAUSAL
     Dosage: 0.5 UG, DAILY (1/D)
     Route: 048
     Dates: end: 20051031
  9. BRUFEN [Concomitant]
     Indication: ARTHRALGIA
     Dosage: 200 MG, DAILY (1/D)
     Route: 048
     Dates: end: 20051031
  10. PROCYLIN [Concomitant]
     Indication: ARTERIOSCLEROSIS OBLITERANS
     Dosage: 60 MG, DAILY (1/D)
     Route: 048
     Dates: end: 20051031
  11. TOKISYAKUYAKUSAN [Concomitant]
     Indication: ANAEMIA
     Dosage: 5 G, DAILY (1/D)
     Route: 048
     Dates: end: 20051031
  12. GOSHAJINKIGAN [Concomitant]
     Indication: HYPOAESTHESIA
     Dosage: 5 G, DAILY (1/D)
     Route: 048
     Dates: start: 20050812, end: 20051031

REACTIONS (3)
  - RIB FRACTURE [None]
  - SPINAL COMPRESSION FRACTURE [None]
  - SPINAL FRACTURE [None]
